FAERS Safety Report 5505413-2 (Version None)
Quarter: 2007Q4

REPORT INFORMATION
  Report Type: 
  Country: None (occurrence: None)
  Receive Date: 20071102
  Receipt Date: 20071025
  Transmission Date: 20080405
  Serious: Yes (Hospitalization)
  Sender: FDA-Public Use
  Company Number: DK-ASTRAZENECA-2007SE05726

PATIENT
  Age: 12609 Day
  Sex: Male
  Weight: 79 kg

DRUGS (5)
  1. SEROQUEL [Suspect]
     Indication: SCHIZOPHRENIA, PARANOID TYPE
     Route: 048
     Dates: start: 20060831, end: 20070804
  2. ALPROX [Concomitant]
     Dosage: 0.25 MG
     Route: 048
  3. DOGMATIL [Concomitant]
     Dosage: 1600 MG
  4. DOGMATIL [Concomitant]
  5. CISCORDINOL [Concomitant]

REACTIONS (5)
  - COLD SWEAT [None]
  - DYSPNOEA [None]
  - MUSCLE SPASMS [None]
  - PARKINSONISM [None]
  - PERSONALITY DISORDER [None]
